FAERS Safety Report 20977261 (Version 1)
Quarter: 2022Q2

REPORT INFORMATION
  Report Type: Report from Study
  Country: GB (occurrence: GB)
  Receive Date: 20220617
  Receipt Date: 20220617
  Transmission Date: 20220721
  Serious: Yes (Hospitalization)
  Sender: FDA-Public Use
  Company Number: GB-ALLERGAN-2219405US

PATIENT
  Sex: Female

DRUGS (1)
  1. BOTULINUM TOXIN TYPE A [Suspect]
     Active Substance: BOTULINUM TOXIN TYPE A
     Indication: Product used for unknown indication
     Dosage: UNK UNK, SINGLE

REACTIONS (7)
  - Mass [Unknown]
  - Swelling face [Unknown]
  - Foreign body in eye [Unknown]
  - Eye injury [Unknown]
  - Palpitations [Unknown]
  - Eye infection [Unknown]
  - Pain [Unknown]
